FAERS Safety Report 9837857 (Version 3)
Quarter: 2014Q4

REPORT INFORMATION
  Report Type: Spontaneous
  Country: US (occurrence: None)
  Receive Date: 20131205
  Receipt Date: 20141010
  Transmission Date: 20150529
  Serious: No
  Sender: FDA-Public Use
  Company Number: 163-POMAL-13104378

PATIENT
  Age: 49 Year
  Sex: Female
  Weight: 65.8 kg

DRUGS (9)
  1. ZOMETA [Concomitant]
     Active Substance: ZOLEDRONIC ACID
  2. VELCADE [Concomitant]
     Active Substance: BORTEZOMIB
  3. POMALYST [Suspect]
     Active Substance: POMALIDOMIDE
     Indication: PLASMA CELL MYELOMA
     Dosage: 4 MG, 21 IN 21 D, PO
     Route: 048
     Dates: start: 201307, end: 20140107
  4. PROCHLORPERAZINE (PROCHLORPERAZINE) [Concomitant]
     Active Substance: PROCHLORPERAZINE
  5. WARFARIN SODIUM (WARFARIN SODIUM) [Concomitant]
     Active Substance: WARFARIN SODIUM
  6. ATIVAN [Concomitant]
     Active Substance: LORAZEPAM
  7. DEXAMETHASONE (DEXAMETHASONE) [Concomitant]
     Active Substance: DEXAMETHASONE
  8. PROTONIX [Concomitant]
     Active Substance: PANTOPRAZOLE SODIUM
  9. FENTANYL (FENTANYL) [Concomitant]
     Active Substance: FENTANYL

REACTIONS (4)
  - Light chain analysis increased [None]
  - Drug dose omission [None]
  - Plasma cell myeloma [None]
  - Laboratory test abnormal [None]

NARRATIVE: CASE EVENT DATE: 20131020
